FAERS Safety Report 4738700-6 (Version None)
Quarter: 2005Q3

REPORT INFORMATION
  Report Type: 
  Country: None (occurrence: None)
  Receive Date: 20050803
  Receipt Date: 20050722
  Transmission Date: 20060218
  Serious: Yes (Hospitalization)
  Sender: FDA-Public Use
  Company Number: 2005106473

PATIENT
  Age: 75 Year
  Sex: Male

DRUGS (4)
  1. LIPITOR [Suspect]
     Indication: ILL-DEFINED DISORDER
     Dosage: 80 MG, ORAL
     Route: 048
     Dates: start: 20050501
  2. PLAVIX (CLOPIDOGREL SULFATE)` [Concomitant]
  3. ACETYLSALICYLIC ACID SRT [Concomitant]
  4. SATINS (HMG COA REDUCTASE INHIBITORS) [Concomitant]

REACTIONS (4)
  - HEPATIC FAILURE [None]
  - MYALGIA [None]
  - NAUSEA [None]
  - RENAL FAILURE [None]
